FAERS Safety Report 20267045 (Version 1)
Quarter: 2021Q4

REPORT INFORMATION
  Report Type: Spontaneous
  Country: CN (occurrence: CN)
  Receive Date: 20211231
  Receipt Date: 20211231
  Transmission Date: 20220303
  Serious: Yes (Hospitalization, Disabling)
  Sender: FDA-Public Use
  Company Number: CN-PFIZER INC-202101843642

PATIENT
  Age: 68 Year
  Sex: Male
  Weight: 69 kg

DRUGS (5)
  1. METHOTREXATE [Suspect]
     Active Substance: METHOTREXATE
     Indication: T-cell lymphoma
     Dosage: 15 MG, 1X/DAY
     Route: 037
     Dates: start: 20211213, end: 20211213
  2. METHOTREXATE [Suspect]
     Active Substance: METHOTREXATE
     Indication: Neoplasm malignant
  3. METHOTREXATE [Suspect]
     Active Substance: METHOTREXATE
     Indication: Chemotherapy
  4. DEXAMETHASONE [Suspect]
     Active Substance: DEXAMETHASONE
     Dosage: 3 MG
     Route: 037
     Dates: start: 20211213
  5. DEXAMETHASONE [Suspect]
     Active Substance: DEXAMETHASONE
     Dosage: SLOWLY
     Route: 037
     Dates: end: 20211213

REACTIONS (4)
  - Paraplegia [Recovering/Resolving]
  - Hypotonia [Recovering/Resolving]
  - Hypoaesthesia [Unknown]
  - Sensory loss [Unknown]

NARRATIVE: CASE EVENT DATE: 20211213
